FAERS Safety Report 4437373-X (Version None)
Quarter: 2004Q3

REPORT INFORMATION
  Report Type: 
  Country: None (occurrence: None)
  Receive Date: 20040726
  Receipt Date: 20040413
  Transmission Date: 20050211
  Serious: No
  Sender: FDA-Public Use
  Company Number: USA040463838

PATIENT
  Age: 31 Year
  Sex: Male

DRUGS (2)
  1. FORTEO [Suspect]
     Indication: OSTEOGENESIS IMPERFECTA
     Dosage: 20 UG/1 DAY
     Dates: start: 20040327
  2. MAGNESIUM CITRATE SOLUTION [Concomitant]

REACTIONS (2)
  - CONSTIPATION [None]
  - STOOLS WATERY [None]
